FAERS Safety Report 16418628 (Version 1)
Quarter: 2019Q2

REPORT INFORMATION
  Report Type: Spontaneous
  Country: US (occurrence: US)
  Receive Date: 20190612
  Receipt Date: 20190612
  Transmission Date: 20190711
  Serious: No
  Sender: FDA-Public Use
  Company Number: US-009507513-1906USA004027

PATIENT
  Sex: Female

DRUGS (2)
  1. PREGNYL [Suspect]
     Active Substance: CHORIOGONADOTROPIN ALFA
     Indication: INFERTILITY FEMALE
     Dosage: 5000 IU INTERNATIONAL UNIT(S), QD
     Route: 030
     Dates: start: 20190419
  2. PROGESTERONE. [Suspect]
     Active Substance: PROGESTERONE

REACTIONS (3)
  - Pruritus [Unknown]
  - Erythema [Unknown]
  - Rash [Unknown]

NARRATIVE: CASE EVENT DATE: 2019
